FAERS Safety Report 7717519-8 (Version None)
Quarter: 2011Q3

REPORT INFORMATION
  Report Type: 
  Country: None (occurrence: None)
  Receive Date: 20110830
  Receipt Date: 20110818
  Transmission Date: 20111222
  Serious: Yes (Hospitalization, Disabling)
  Sender: FDA-Public Use
  Company Number: HR-ELI_LILLY_AND_COMPANY-HR201107002282

PATIENT
  Age: 62 Year
  Sex: Female

DRUGS (6)
  1. IBRUPROFEN [Concomitant]
     Indication: PAIN
  2. NORVASC [Concomitant]
  3. FORTEO [Suspect]
     Indication: OSTEOPOROSIS
     Dosage: 20 UG, QD
     Route: 058
  4. SELDIAR [Concomitant]
     Indication: PAIN
  5. RANIX [Concomitant]
     Indication: GASTRITIS
     Dosage: 250 UNK, UNK
  6. IRUZID                             /01613901/ [Concomitant]
     Indication: HYPERTENSION

REACTIONS (1)
  - SPINAL FRACTURE [None]
